FAERS Safety Report 5579258-1 (Version None)
Quarter: 2008Q1

REPORT INFORMATION
  Report Type: 
  Country: None (occurrence: None)
  Receive Date: 20080102
  Receipt Date: 20071219
  Transmission Date: 20080703
  Serious: Yes (Hospitalization)
  Sender: FDA-Public Use
  Company Number: BE-ELI_LILLY_AND_COMPANY-BE200709006058

PATIENT
  Sex: Male
  Weight: 100.4 kg

DRUGS (10)
  1. SOMATROPIN [Suspect]
     Indication: GROWTH HORMONE DEFICIENCY
     Dosage: 0.3 MG, DAILY (1/D)
     Route: 058
     Dates: start: 20020801
  2. AMLODIPINE [Concomitant]
     Dosage: 5 MG, DAILY (1/D)
     Route: 048
  3. PHENYTOIN [Concomitant]
     Dosage: 100 MG, 3/D
     Route: 048
  4. HYDROCORTISONE [Concomitant]
     Dosage: 24 MG, DAILY (1/D)
     Route: 065
  5. L-THYROXINE [Concomitant]
     Dosage: 125 UG, UNKNOWN
     Route: 048
  6. DESMOPRESSIN [Concomitant]
     Dosage: 10 UG, 3/D
     Route: 065
  7. PROLOPA [Concomitant]
     Dosage: 125 MG, 3/D
     Route: 048
  8. FLOMAX [Concomitant]
     Dosage: 0.1 MG, DAILY (1/D)
     Route: 065
  9. RAMIPRIL [Concomitant]
     Dosage: 5 MG, DAILY (1/D)
  10. TESTOSTERONE [Concomitant]
     Dosage: 187.5 MG, OTHER
     Route: 030

REACTIONS (1)
  - PITUITARY TUMOUR BENIGN [None]
